FAERS Safety Report 14779640 (Version 1)
Quarter: 2018Q2

REPORT INFORMATION
  Report Type: Spontaneous
  Country: US (occurrence: US)
  Receive Date: 20180419
  Receipt Date: 20180419
  Transmission Date: 20180711
  Serious: No
  Sender: FDA-Public Use
  Company Number: US-SHIRE-US201814571

PATIENT
  Age: 20 Year
  Sex: Female
  Weight: 70.3 kg

DRUGS (1)
  1. VYVANSE [Suspect]
     Active Substance: LISDEXAMFETAMINE DIMESYLATE
     Indication: BINGE EATING
     Dosage: UNK, 1X/DAY:QD
     Route: 065
     Dates: end: 20180407

REACTIONS (8)
  - Hypersensitivity [Recovering/Resolving]
  - Urticaria [Not Recovered/Not Resolved]
  - Hypoaesthesia [Recovered/Resolved]
  - Muscle spasms [Not Recovered/Not Resolved]
  - Insomnia [Recovered/Resolved]
  - Diarrhoea [Not Recovered/Not Resolved]
  - Gastrointestinal disorder [Recovered/Resolved]
  - Condition aggravated [Not Recovered/Not Resolved]

NARRATIVE: CASE EVENT DATE: 20180406
